FAERS Safety Report 20484977 (Version 1)
Quarter: 2022Q1

REPORT INFORMATION
  Report Type: Spontaneous
  Country: US (occurrence: US)
  Receive Date: 20220217
  Receipt Date: 20220217
  Transmission Date: 20220423
  Serious: No
  Sender: FDA-Public Use
  Company Number: US-SA-SAC20220210001051

PATIENT
  Sex: Female

DRUGS (9)
  1. DUPIXENT [Suspect]
     Active Substance: DUPILUMAB
     Indication: Dermatitis atopic
     Dosage: 300 MG, QOW
     Route: 058
     Dates: start: 202007, end: 202109
  2. TRIAMCINOLONE ACETONIDE [Concomitant]
     Active Substance: TRIAMCINOLONE ACETONIDE
  3. BENZONATATE [Concomitant]
     Active Substance: BENZONATATE
  4. TOPIRAMATE [Concomitant]
     Active Substance: TOPIRAMATE
  5. CYCLOBENZAPRINE HYDROCHLORIDE [Concomitant]
     Active Substance: CYCLOBENZAPRINE HYDROCHLORIDE
  6. SUMATRIPTAN SUCCINATE [Concomitant]
     Active Substance: SUMATRIPTAN SUCCINATE
  7. MUPIROCIN [Concomitant]
     Active Substance: MUPIROCIN
  8. MELOXICAM [Concomitant]
     Active Substance: MELOXICAM
  9. FLUOCINOLONE ACETONIDE [Concomitant]
     Active Substance: FLUOCINOLONE ACETONIDE

REACTIONS (4)
  - Eye pain [Recovered/Resolved]
  - Arthralgia [Recovered/Resolved]
  - Oral herpes [Recovered/Resolved]
  - Rash [Unknown]
